FAERS Safety Report 4867030-7 (Version None)
Quarter: 2005Q4

REPORT INFORMATION
  Report Type: 
  Country: None (occurrence: None)
  Receive Date: 20051220
  Receipt Date: 20020310
  Transmission Date: 20060501
  Serious: Yes (Death)
  Sender: FDA-Public Use
  Company Number: HQ0204104JAN2000

PATIENT
  Age: 58 Year
  Sex: Male

DRUGS (2)
  1. GEMTUZUMAB OZOGAMICIN [Suspect]
     Indication: ACUTE MYELOID LEUKAEMIA
     Dosage: 9 MG/M^2 1X PER 1 DOS INTRAVENOUS
     Route: 042
     Dates: start: 19991201, end: 19991201
  2. GEMTUZUMAB OZOGAMICIN [Suspect]
     Indication: ACUTE MYELOID LEUKAEMIA
     Dosage: 9 MG/M^2 1X PER 1 DOS INTRAVENOUS
     Route: 042
     Dates: start: 19991215, end: 19991215

REACTIONS (7)
  - ACUTE MYELOID LEUKAEMIA [None]
  - APLASIA [None]
  - ARRHYTHMIA [None]
  - EPISTAXIS [None]
  - MALIGNANT NEOPLASM PROGRESSION [None]
  - MELAENA [None]
  - THROMBOCYTOPENIA [None]
